FAERS Safety Report 18529529 (Version 3)
Quarter: 2020Q4

REPORT INFORMATION
  Report Type: Spontaneous
  Country: US (occurrence: US)
  Receive Date: 20201121
  Receipt Date: 20201221
  Transmission Date: 20210114
  Serious: Yes (Other)
  Sender: FDA-Public Use
  Company Number: US-HETERO-HET2020US01237

PATIENT
  Age: 57 Year
  Sex: Male
  Weight: 70.3 kg

DRUGS (4)
  1. IBUPROFEN. [Concomitant]
     Active Substance: IBUPROFEN
     Indication: PRODUCT USED FOR UNKNOWN INDICATION
     Dosage: 1000 MG
     Route: 065
  2. IBUPROFEN. [Concomitant]
     Active Substance: IBUPROFEN
     Dosage: 400 UNK
     Route: 065
  3. IBUPROFEN. [Concomitant]
     Active Substance: IBUPROFEN
     Dosage: 200 MG
     Route: 065
     Dates: start: 20201106
  4. LEVOFLOXACIN. [Suspect]
     Active Substance: LEVOFLOXACIN
     Indication: PROSTATITIS
     Dosage: 500 MG, QD
     Route: 048
     Dates: start: 20201106, end: 20201115

REACTIONS (14)
  - Dyspnoea [Recovered/Resolved]
  - Dysphagia [Recovered/Resolved]
  - Liver injury [Not Recovered/Not Resolved]
  - Dry throat [Recovered/Resolved]
  - Tinnitus [Not Recovered/Not Resolved]
  - Renal failure [Not Recovered/Not Resolved]
  - Chromaturia [Recovered/Resolved]
  - Dry mouth [Not Recovered/Not Resolved]
  - Thirst [Recovered/Resolved]
  - Testicular pain [Not Recovered/Not Resolved]
  - Headache [Recovered/Resolved]
  - Insomnia [Recovered/Resolved]
  - Rash [Unknown]
  - Arthralgia [Not Recovered/Not Resolved]

NARRATIVE: CASE EVENT DATE: 20201106
